FAERS Safety Report 8446438-7 (Version None)
Quarter: 2012Q2

REPORT INFORMATION
  Report Type: 
  Country: None (occurrence: None)
  Receive Date: 20120618
  Receipt Date: 20120323
  Transmission Date: 20120825
  Serious: No
  Sender: FDA-Public Use
  Company Number: US-TEVA-329918USA

PATIENT
  Sex: Female

DRUGS (3)
  1. OXYCODONE HCL [Concomitant]
  2. FENTANYL-100 [Concomitant]
     Dosage: PATCH EVERY 72 HOURS
  3. ACTIQ [Suspect]
     Route: 002
     Dates: start: 20040101

REACTIONS (1)
  - PAIN [None]
